FAERS Safety Report 21136646 (Version 1)
Quarter: 2022Q3

REPORT INFORMATION
  Report Type: Spontaneous
  Country: US (occurrence: None)
  Receive Date: 20220726
  Receipt Date: 20220726
  Transmission Date: 20221027
  Serious: Yes (Life-Threatening, Hospitalization)
  Sender: FDA-Public Use
  Company Number: None

PATIENT
  Age: 71 Year
  Sex: Male
  Weight: 94 kg

DRUGS (2)
  1. ALLOPURINOL [Suspect]
     Active Substance: ALLOPURINOL
     Indication: Gout
     Dosage: FREQUENCY : DAILY;?
     Route: 048
     Dates: start: 20220608, end: 20220708
  2. SPIRONOLACTONE [Suspect]
     Active Substance: SPIRONOLACTONE
     Indication: Cardiac failure congestive
     Dosage: FREQUENCY : DAILY;?
     Route: 048
     Dates: start: 20220610, end: 20220708

REACTIONS (21)
  - Syncope [None]
  - Mental status changes [None]
  - Tachycardia [None]
  - Chest X-ray abnormal [None]
  - Pyrexia [None]
  - Pneumonia [None]
  - Sepsis [None]
  - Metabolic encephalopathy [None]
  - Hyponatraemia [None]
  - Acute kidney injury [None]
  - Rash erythematous [None]
  - Target skin lesion [None]
  - Hypotension [None]
  - Drug reaction with eosinophilia and systemic symptoms [None]
  - Oliguria [None]
  - Infection [None]
  - Norovirus test positive [None]
  - Diarrhoea [None]
  - Therapy interrupted [None]
  - Dermatitis [None]
  - Eosinophilia [None]

NARRATIVE: CASE EVENT DATE: 20220705
